FAERS Safety Report 20759937 (Version 1)
Quarter: 2022Q2

REPORT INFORMATION
  Report Type: Other
  Country: CA (occurrence: CA)
  Receive Date: 20220427
  Receipt Date: 20220427
  Transmission Date: 20220721
  Serious: Yes (Other)
  Sender: FDA-Public Use
  Company Number: CA-CELLTRION INC.-2022CA005154

PATIENT

DRUGS (3)
  1. TRUXIMA [Suspect]
     Active Substance: RITUXIMAB-ABBS
     Indication: Antiphospholipid syndrome
     Dosage: 1000 MG, Q14DAYS X2 DOSES (AS ONGOING STEROID SPARING MANAGEMENT)
     Route: 042
     Dates: start: 20220419
  2. METHYLPREDNISOLONE [Concomitant]
     Active Substance: METHYLPREDNISOLONE
     Indication: Antiphospholipid syndrome
     Dosage: 1 G IV DAILY X3 (COMPLETED)
     Route: 042
  3. PREDNISONE [Concomitant]
     Active Substance: PREDNISONE
     Indication: Antiphospholipid syndrome
     Dosage: 60 MG PO DAILY WITH PLANNED TAPER
     Route: 048

REACTIONS (3)
  - Antiphospholipid syndrome [Unknown]
  - Insurance issue [Unknown]
  - Off label use [Unknown]
